FAERS Safety Report 9006204 (Version 3)
Quarter: 2013Q1

REPORT INFORMATION
  Report Type: Spontaneous
  Country: US (occurrence: US)
  Receive Date: 20130110
  Receipt Date: 20130128
  Transmission Date: 20140127
  Serious: Yes (Hospitalization)
  Sender: FDA-Public Use
  Company Number: US-009507513-1301USA003336

PATIENT
  Age: 76 Year
  Sex: Male
  Weight: 99.77 kg

DRUGS (8)
  1. JANUVIA [Suspect]
     Indication: DIABETES MELLITUS
     Dosage: 50 MG, QD
     Route: 048
     Dates: start: 201211, end: 20121215
  2. HUMALOG [Concomitant]
  3. LANTUS [Concomitant]
  4. CYANOCOBALAMIN [Concomitant]
  5. CRESTOR [Concomitant]
  6. PROTONIX [Concomitant]
  7. PLAVIX [Concomitant]
  8. CIALIS [Concomitant]

REACTIONS (1)
  - Pancreatitis [Recovered/Resolved]
